FAERS Safety Report 25011749 (Version 1)
Quarter: 2025Q1

REPORT INFORMATION
  Report Type: Report from Study
  Country: CR (occurrence: CR)
  Receive Date: 20250226
  Receipt Date: 20250226
  Transmission Date: 20250409
  Serious: Yes (Hospitalization)
  Sender: NOVARTIS
  Company Number: CR-002147023-NVSC2025CR028958

PATIENT
  Age: 39 Year
  Sex: Female

DRUGS (1)
  1. KESIMPTA [Suspect]
     Active Substance: OFATUMUMAB
     Indication: Multiple sclerosis
     Dosage: 20 MG, QMO
     Route: 058
     Dates: start: 202411

REACTIONS (3)
  - Trigeminal neuralgia [Unknown]
  - Facial pain [Unknown]
  - Back pain [Unknown]

NARRATIVE: CASE EVENT DATE: 20250215
